FAERS Safety Report 4691656-7 (Version None)
Quarter: 2005Q2

REPORT INFORMATION
  Report Type: 
  Country: None (occurrence: None)
  Receive Date: 20050616
  Receipt Date: 20050414
  Transmission Date: 20051028
  Serious: Yes (Other)
  Sender: FDA-Public Use
  Company Number: PHEH2005US04374

PATIENT
  Age: 83 Year
  Sex: Male
  Weight: 90 kg

DRUGS (7)
  1. BETAPACE [Concomitant]
  2. THALOMID [Concomitant]
     Indication: MULTIPLE MYELOMA
     Dosage: 50 MG, QD
     Dates: start: 20020718, end: 20030313
  3. DEXAMETHASONE [Concomitant]
  4. AREDIA [Suspect]
     Indication: MULTIPLE MYELOMA
     Dosage: 90 MG, QMO
     Dates: start: 19990301, end: 20020401
  5. AREDIA [Suspect]
     Dosage: 90 MG, QMO
     Dates: start: 20020703, end: 20021218
  6. AREDIA [Suspect]
     Dosage: 60 MG, QMO
     Dates: start: 20030313, end: 20050310
  7. ZOMETA [Suspect]
     Indication: MULTIPLE MYELOMA
     Dosage: 4 MG, QMO
     Dates: start: 20020507, end: 20020604

REACTIONS (6)
  - BLOOD CREATININE INCREASED [None]
  - BLOOD UREA INCREASED [None]
  - FISTULA [None]
  - JAW OPERATION [None]
  - OSTEOMYELITIS [None]
  - WOUND DEBRIDEMENT [None]
